FAERS Safety Report 9698169 (Version 2)
Quarter: 2014Q1

REPORT INFORMATION
  Report Type: Spontaneous
  Country: GB (occurrence: GB)
  Receive Date: 20131120
  Receipt Date: 20140312
  Transmission Date: 20141002
  Serious: Yes (Death)
  Sender: FDA-Public Use
  Company Number: GB-PFIZER INC-2013326242

PATIENT
  Age: 86 Year
  Sex: Female

DRUGS (10)
  1. TAZOCIN [Suspect]
     Dosage: UNK
     Route: 065
  2. PIPERACILLIN/TAZOBACTAM [Suspect]
     Indication: LIVER ABSCESS
     Dosage: 4.5 G, 3X/DAY
     Route: 042
     Dates: start: 20131018, end: 20131025
  3. PIPERACILLIN/TAZOBACTAM [Suspect]
     Indication: SEPSIS
  4. METRONIDAZOLE [Suspect]
     Indication: LIVER ABSCESS
     Dosage: UNK
     Dates: start: 20131025, end: 20131025
  5. BRINZOLAMIDE [Concomitant]
     Indication: SEPSIS
     Dosage: 1 GTT, 1X/DAY
  6. BRINZOLAMIDE [Concomitant]
     Indication: GLAUCOMA
  7. LATANOPROST [Concomitant]
     Indication: SEPSIS
     Dosage: 1 GTT, 1X/DAY
     Dates: start: 20131018, end: 20131025
  8. LATANOPROST [Concomitant]
     Indication: GLAUCOMA
  9. MAGNESIUM GLYCEROPHOSPHATE [Concomitant]
     Indication: BLOOD MAGNESIUM DECREASED
     Dosage: UNK
     Route: 048
     Dates: start: 20131018, end: 20131025
  10. TAZOBACTAM [Concomitant]
     Indication: LIVER ABSCESS
     Dosage: 4.5 G, UNK
     Route: 042
     Dates: start: 20131018, end: 20131025

REACTIONS (1)
  - Anaphylactic reaction [Fatal]
